FAERS Safety Report 22105274 (Version 2)
Quarter: 2023Q2

REPORT INFORMATION
  Report Type: Report from Study
  Country: US (occurrence: US)
  Receive Date: 20230317
  Receipt Date: 20230417
  Transmission Date: 20230721
  Serious: No
  Sender: FDA-Public Use
  Company Number: US-ACADIA PHARMACEUTICALS INC.-ACA-2023-PIM-000747

PATIENT
  Age: 66 Year
  Sex: Female

DRUGS (2)
  1. NUPLAZID [Suspect]
     Active Substance: PIMAVANSERIN TARTRATE
     Indication: Parkinson^s disease psychosis
     Dosage: 34 MILLIGRAM, QD
     Route: 048
  2. NUPLAZID [Suspect]
     Active Substance: PIMAVANSERIN TARTRATE
     Dosage: 34MG EVERY OTHER DAY
     Route: 048

REACTIONS (4)
  - Wrist fracture [Unknown]
  - Inappropriate schedule of product administration [Not Recovered/Not Resolved]
  - Hallucination [Unknown]
  - Fall [Unknown]

NARRATIVE: CASE EVENT DATE: 20230217
